FAERS Safety Report 15306652 (Version 1)
Quarter: 2018Q3

REPORT INFORMATION
  Report Type: Spontaneous
  Country: US (occurrence: US)
  Receive Date: 20180822
  Receipt Date: 20180822
  Transmission Date: 20181010
  Serious: Yes (Hospitalization, Other)
  Sender: FDA-Public Use
  Company Number: US-GLAXOSMITHKLINE-US2018GSK152036

PATIENT
  Age: 61 Year
  Sex: Female
  Weight: 81 kg

DRUGS (1)
  1. PREVACID [Suspect]
     Active Substance: LANSOPRAZOLE
     Indication: DYSPEPSIA
     Dosage: UNK
     Route: 065

REACTIONS (9)
  - Gastric ulcer [Unknown]
  - Renal impairment [Unknown]
  - Chronic kidney disease [Unknown]
  - Oral pain [Unknown]
  - Acute kidney injury [Unknown]
  - Renal injury [Unknown]
  - Nephrogenic anaemia [Unknown]
  - Oral discomfort [Unknown]
  - Pain [Unknown]

NARRATIVE: CASE EVENT DATE: 20170306
